FAERS Safety Report 19870349 (Version 2)
Quarter: 2021Q4

REPORT INFORMATION
  Report Type: Spontaneous
  Country: US (occurrence: US)
  Receive Date: 20210923
  Receipt Date: 20211006
  Transmission Date: 20220303
  Serious: No
  Sender: FDA-Public Use
  Company Number: US-AMGEN-USASP2021141695

PATIENT
  Sex: Female

DRUGS (2)
  1. PROLIA [Suspect]
     Active Substance: DENOSUMAB
     Indication: Osteoporosis postmenopausal
     Dosage: UNK
     Route: 065
  2. COVID-19 VACCINE [Concomitant]
     Dosage: UNK
     Dates: start: 202104

REACTIONS (6)
  - Adverse drug reaction [Unknown]
  - Illness [Unknown]
  - Blood parathyroid hormone increased [Unknown]
  - Urine analysis abnormal [Unknown]
  - Dysphonia [Unknown]
  - Influenza like illness [Unknown]

NARRATIVE: CASE EVENT DATE: 20210201
